FAERS Safety Report 4876706-7 (Version None)
Quarter: 2005Q4

REPORT INFORMATION
  Report Type: 
  Country: None (occurrence: None)
  Receive Date: 20051206
  Receipt Date: 20050916
  Transmission Date: 20060501
  Serious: No
  Sender: FDA-Public Use
  Company Number: USA041286599

PATIENT
  Age: 74 Year
  Sex: Female

DRUGS (8)
  1. CYMBALTA [Suspect]
     Indication: ANXIETY
     Dosage: 30 MG DAY
     Dates: start: 20041218, end: 20041218
  2. CYMBALTA [Suspect]
     Indication: ARTHRALGIA
     Dosage: 30 MG DAY
     Dates: start: 20041218, end: 20041218
  3. CYMBALTA [Suspect]
     Indication: ANXIETY
     Dosage: 30 MG DAY
     Dates: start: 20050915, end: 20050916
  4. CYMBALTA [Suspect]
     Indication: ARTHRALGIA
     Dosage: 30 MG DAY
     Dates: start: 20050915, end: 20050916
  5. ACTOS [Concomitant]
  6. PREVACID [Concomitant]
  7. DIOVAN [Concomitant]
  8. LIPITOR [Concomitant]

REACTIONS (6)
  - DYSGEUSIA [None]
  - FEELING ABNORMAL [None]
  - MIDDLE INSOMNIA [None]
  - NAUSEA [None]
  - STOMACH DISCOMFORT [None]
  - VOMITING [None]
